FAERS Safety Report 9544101 (Version 1)
Quarter: 2013Q3

REPORT INFORMATION
  Report Type: Spontaneous
  Country: US (occurrence: US)
  Receive Date: 20130923
  Receipt Date: 20130923
  Transmission Date: 20140515
  Serious: Yes (Hospitalization)
  Sender: FDA-Public Use
  Company Number: US-ABBVIE-13P-163-1148063-00

PATIENT
  Age: 84 Year
  Sex: Female
  Weight: 99.88 kg

DRUGS (13)
  1. HUMIRA [Suspect]
     Indication: RHEUMATOID ARTHRITIS
     Dates: start: 2012
  2. ASPIRIN [Concomitant]
     Indication: CARDIAC DISORDER
  3. FERROUS SULFATE [Concomitant]
     Indication: IRON DEFICIENCY
  4. FUROSEMIDE [Concomitant]
     Indication: FLUID RETENTION
  5. LEVOTHYROXINE [Concomitant]
     Indication: HYPOTHYROIDISM
  6. LISINOPRIL [Concomitant]
     Indication: HYPERTENSION
  7. ATORVASTATIN [Concomitant]
     Indication: BLOOD CHOLESTEROL INCREASED
  8. DONEPEZIL [Concomitant]
     Indication: PRODUCT USED FOR UNKNOWN INDICATION
  9. CARVEDILOL [Concomitant]
     Indication: CARDIAC DISORDER
  10. PROAIR [Concomitant]
     Indication: ASTHMA
  11. PRIMIDONE [Concomitant]
     Indication: PARKINSON^S DISEASE
  12. ADVAIR [Concomitant]
     Indication: ASTHMA
  13. MULTIVITAMINS [Concomitant]
     Indication: VITAMIN SUPPLEMENTATION

REACTIONS (7)
  - Dysuria [Recovered/Resolved]
  - Asthenia [Recovered/Resolved]
  - Diarrhoea [Recovered/Resolved]
  - Cystitis [Recovered/Resolved]
  - Dehydration [Recovered/Resolved]
  - Medication error [Unknown]
  - Pneumonia [Recovered/Resolved]
